FAERS Safety Report 9868537 (Version 1)
Quarter: 2014Q1

REPORT INFORMATION
  Report Type: Spontaneous
  Country: GB (occurrence: GB)
  Receive Date: 20140204
  Receipt Date: 20140204
  Transmission Date: 20141002
  Serious: Yes (Death)
  Sender: FDA-Public Use
  Company Number: GB-PFIZER INC-2014029825

PATIENT
  Age: 19 Year
  Sex: Male

DRUGS (1)
  1. DOXYCYCLINE HYCLATE [Suspect]
     Indication: DERMATITIS
     Dosage: 50 MG, 2X/DAY

REACTIONS (2)
  - Completed suicide [Fatal]
  - Suicidal ideation [Fatal]
